FAERS Safety Report 6156491-1 (Version None)
Quarter: 2009Q2

REPORT INFORMATION
  Report Type: 
  Country: None (occurrence: None)
  Receive Date: 20090413
  Receipt Date: 20081103
  Transmission Date: 20091009
  Serious: Yes (Other)
  Sender: FDA-Public Use
  Company Number: OPER20080215

PATIENT
  Age: 57 Year
  Sex: Male

DRUGS (4)
  1. OPANA ER [Suspect]
     Indication: BACK PAIN
     Dosage: 40 MG, TID, PER ORAL
     Route: 048
     Dates: start: 20080401
  2. OPANA ER [Suspect]
     Indication: NECK PAIN
     Dosage: 40 MG, TID, PER ORAL
     Route: 048
     Dates: start: 20080401
  3. OXYCODONE HCL AND ACETAMINOPHEN [Concomitant]
  4. METOCLOPRAMIDE [Concomitant]

REACTIONS (4)
  - ABDOMINAL PAIN UPPER [None]
  - DRUG DOSE OMISSION [None]
  - INAPPROPRIATE SCHEDULE OF DRUG ADMINISTRATION [None]
  - INCORRECT DOSE ADMINISTERED [None]
